FAERS Safety Report 4876018-1 (Version None)
Quarter: 2006Q1

REPORT INFORMATION
  Report Type: 
  Country: None (occurrence: None)
  Receive Date: 20060109
  Receipt Date: 20051228
  Transmission Date: 20060701
  Serious: Yes (Other)
  Sender: FDA-Public Use
  Company Number: JP-SANOFI-SYNTHELABO-A01200600051

PATIENT
  Sex: Female

DRUGS (2)
  1. SOSEGON [Suspect]
     Indication: ABDOMINAL PAIN
     Dosage: UNK
     Route: 065
  2. ATARAX [Suspect]
     Indication: ABDOMINAL PAIN
     Dosage: UNK
     Route: 065

REACTIONS (3)
  - MUSCLE ATROPHY [None]
  - MUSCLE TIGHTNESS [None]
  - POST PROCEDURAL COMPLICATION [None]
